FAERS Safety Report 11539239 (Version 1)
Quarter: 2015Q3

REPORT INFORMATION
  Report Type: Spontaneous
  Country: US (occurrence: US)
  Receive Date: 20150923
  Receipt Date: 20150923
  Transmission Date: 20151125
  Serious: No
  Sender: FDA-Public Use
  Company Number: US-PFIZER INC-2015304404

PATIENT
  Age: 81 Year
  Sex: Female
  Weight: 58.5 kg

DRUGS (2)
  1. ADVIL [Suspect]
     Active Substance: IBUPROFEN
     Indication: BACK PAIN
     Dosage: 200 MG, TWO OR THREE EVERY FOUR HOURS
     Dates: start: 201509, end: 201509
  2. ADVIL [Suspect]
     Active Substance: IBUPROFEN
     Indication: BACK PAIN
     Dosage: 200 MG, TWO OR THREE EVERY FOUR HOURS
     Dates: start: 201509, end: 201509

REACTIONS (9)
  - Stomatitis [Unknown]
  - Extra dose administered [Unknown]
  - Oral pain [Unknown]
  - Drug ineffective [Unknown]
  - Product formulation issue [Unknown]
  - Glossitis [Unknown]
  - Oral mucosal erythema [Unknown]
  - Glossodynia [Unknown]
  - Tongue discolouration [Unknown]

NARRATIVE: CASE EVENT DATE: 201509
